FAERS Safety Report 19653287 (Version 1)
Quarter: 2021Q3

REPORT INFORMATION
  Report Type: Report from Study
  Country: NL (occurrence: NL)
  Receive Date: 20210803
  Receipt Date: 20210803
  Transmission Date: 20211014
  Serious: Yes (Hospitalization)
  Sender: FDA-Public Use
  Company Number: NL-CELLTRION INC.-2021NL010066

PATIENT

DRUGS (5)
  1. TRASTUZUMAB (UNKNOWN) [Suspect]
     Active Substance: TRASTUZUMAB
     Indication: GASTRIC CANCER
     Dosage: 400 MG, EVERY 3 WEEKS
     Route: 042
     Dates: start: 20130828, end: 20180725
  2. DOCETAXEL. [Suspect]
     Active Substance: DOCETAXEL
     Indication: GASTRIC CANCER
     Dosage: 94 MG, EVERY 3 WEEKS
     Route: 042
     Dates: start: 20130828, end: 20131211
  3. BEVACIZUMAB. [Concomitant]
     Active Substance: BEVACIZUMAB
     Indication: GASTRIC CANCER
     Dosage: 503 MG, EVERY  WEEKS
     Route: 042
     Dates: start: 20130828, end: 20180725
  4. OXALIPLATIN. [Suspect]
     Active Substance: OXALIPLATIN
     Indication: GASTRIC CANCER
     Dosage: 109 MG, EVERY 3 WEEKS
     Route: 042
     Dates: start: 20130828, end: 20131211
  5. CAPECITABINE. [Suspect]
     Active Substance: CAPECITABINE
     Indication: GASTRIC CANCER
     Dosage: 3300 MG, EVERY 0.5 DAY
     Route: 048
     Dates: start: 20130828, end: 20140219

REACTIONS (1)
  - Malaise [Unknown]

NARRATIVE: CASE EVENT DATE: 20180810
